FAERS Safety Report 5333310-4 (Version None)
Quarter: 2007Q2

REPORT INFORMATION
  Report Type: 
  Country: None (occurrence: None)
  Receive Date: 20070524
  Receipt Date: 20070514
  Transmission Date: 20071010
  Serious: Yes (Other)
  Sender: FDA-Public Use
  Company Number: US-JNJFOC-20070503904

PATIENT
  Sex: Female
  Weight: 58.97 kg

DRUGS (7)
  1. TOPAMAX [Suspect]
     Route: 048
  2. TOPAMAX [Suspect]
     Route: 048
  3. TOPAMAX [Suspect]
     Indication: MIGRAINE PROPHYLAXIS
     Route: 048
  4. FEMHRT [Concomitant]
     Indication: MENOPAUSE
  5. ACIPHEX [Concomitant]
     Indication: GASTRIC DISORDER
     Route: 048
  6. SYNTHROID [Concomitant]
     Indication: HYPOTHYROIDISM
  7. IMITREX [Concomitant]
     Indication: MIGRAINE
     Route: 048

REACTIONS (5)
  - ANXIETY [None]
  - CONFUSIONAL STATE [None]
  - ILLUSION [None]
  - LOSS OF CONSCIOUSNESS [None]
  - SUICIDAL IDEATION [None]
